FAERS Safety Report 4661074-6 (Version None)
Quarter: 2005Q2

REPORT INFORMATION
  Report Type: 
  Country: None (occurrence: None)
  Receive Date: 20050511
  Receipt Date: 20050429
  Transmission Date: 20051028
  Serious: No
  Sender: FDA-Public Use
  Company Number: 10987

PATIENT
  Age: 4 Year
  Sex: Female

DRUGS (3)
  1. CARBOPLATIN [Suspect]
     Indication: GLIOMA
     Dosage: 550 MG OTH; IV
     Route: 042
     Dates: end: 20050411
  2. VINCRISTINE [Concomitant]
  3. UROKINASE [Concomitant]

REACTIONS (6)
  - CYANOSIS CENTRAL [None]
  - DISCOMFORT [None]
  - HEART RATE INCREASED [None]
  - INFUSION RELATED REACTION [None]
  - SKIN DISORDER [None]
  - URTICARIA [None]
